FAERS Safety Report 22354987 (Version 1)
Quarter: 2023Q2

REPORT INFORMATION
  Report Type: Spontaneous
  Country: GB (occurrence: GB)
  Receive Date: 20230523
  Receipt Date: 20230523
  Transmission Date: 20230721
  Serious: Yes (Other)
  Sender: FDA-Public Use
  Company Number: None

PATIENT
  Sex: Female

DRUGS (1)
  1. GABAPENTIN [Suspect]
     Active Substance: GABAPENTIN
     Indication: Vestibular migraine
     Dosage: 300 MILLIGRAM, QD (CAPSULE)
     Route: 065

REACTIONS (3)
  - Paralysis [Recovered/Resolved]
  - Hallucination [Recovered/Resolved]
  - Headache [Recovering/Resolving]
